FAERS Safety Report 9819116 (Version 6)
Quarter: 2014Q1

REPORT INFORMATION
  Report Type: Report from Study
  Country: US (occurrence: US)
  Receive Date: 20140115
  Receipt Date: 20140325
  Transmission Date: 20141002
  Serious: Yes (Hospitalization, Other)
  Sender: FDA-Public Use
  Company Number: US-BRISTOL-MYERS SQUIBB COMPANY-19982115

PATIENT
  Age: 53 Year
  Sex: Female
  Weight: 77.1 kg

DRUGS (3)
  1. IPILIMUMAB [Suspect]
     Indication: OVARIAN CANCER
     Dosage: 10MG/KG
     Route: 042
     Dates: start: 20130913, end: 20131115
  2. PERCOCET [Concomitant]
     Dates: start: 20130909
  3. IMMODIUM [Concomitant]
     Dates: start: 20130913

REACTIONS (3)
  - Influenza [Recovered/Resolved with Sequelae]
  - Adrenal insufficiency [Recovered/Resolved with Sequelae]
  - Hypophysitis [Unknown]
